FAERS Safety Report 6167150-3 (Version None)
Quarter: 2009Q2

REPORT INFORMATION
  Report Type: 
  Country: None (occurrence: None)
  Receive Date: 20090424
  Receipt Date: 20090415
  Transmission Date: 20091009
  Serious: Yes (Other)
  Sender: FDA-Public Use
  Company Number: GB-MERCK-0904GBR00046

PATIENT
  Age: 59 Year
  Sex: Male
  Weight: 98 kg

DRUGS (3)
  1. JANUVIA [Suspect]
     Indication: DIABETES MELLITUS
     Route: 048
     Dates: start: 20080501, end: 20090319
  2. GLICLAZIDE [Concomitant]
     Indication: DIABETES MELLITUS
     Route: 048
     Dates: start: 20020101
  3. METFORMIN [Concomitant]
     Indication: DIABETES MELLITUS
     Route: 048
     Dates: start: 20040101

REACTIONS (2)
  - HEPATIC STEATOSIS [None]
  - LIVER FUNCTION TEST ABNORMAL [None]
